FAERS Safety Report 7229627-9 (Version None)
Quarter: 2011Q1

REPORT INFORMATION
  Report Type: 
  Country: None (occurrence: None)
  Receive Date: 20110117
  Receipt Date: 20110103
  Transmission Date: 20110831
  Serious: Yes (Hospitalization, Other)
  Sender: FDA-Public Use
  Company Number: US-ELI_LILLY_AND_COMPANY-US201010002332

PATIENT
  Age: 60 Year
  Sex: Female

DRUGS (2)
  1. SYNTHROID [Concomitant]
  2. CYMBALTA [Suspect]
     Dosage: 20 MG, UNK

REACTIONS (4)
  - HEPATIC FAILURE [None]
  - GASTROINTESTINAL TUBE INSERTION [None]
  - DRUG WITHDRAWAL SYNDROME [None]
  - AGITATION [None]
